FAERS Safety Report 7424295-5 (Version None)
Quarter: 2011Q2

REPORT INFORMATION
  Report Type: 
  Country: None (occurrence: None)
  Receive Date: 20110412
  Receipt Date: 20110404
  Transmission Date: 20111010
  Serious: Yes (Hospitalization)
  Sender: FDA-Public Use
  Company Number: WAES 1005USA00383

PATIENT
  Age: 28 Year
  Sex: Female

DRUGS (3)
  1. TRUVADA [Suspect]
     Indication: HIV INFECTION
     Dosage: PO
     Dates: start: 20090617, end: 20110321
  2. TAB ISENIRESS (RALTEGRAVIR POTASSIUM) [Suspect]
     Indication: HIV INFECTION
     Dosage: 400 MG/BID/PO
     Route: 048
     Dates: start: 20090617, end: 20110321
  3. PLACEBO (UNSPECIFIED) [Suspect]
     Indication: HIV INFECTION
     Dosage: 2 TAB/DAILY/PO
     Route: 048
     Dates: start: 20090617, end: 20110321

REACTIONS (1)
  - HODGKIN'S DISEASE [None]
